FAERS Safety Report 5222564-0 (Version None)
Quarter: 2007Q1

REPORT INFORMATION
  Report Type: 
  Country: None (occurrence: None)
  Receive Date: 20070129
  Receipt Date: 20070116
  Transmission Date: 20070707
  Serious: Yes (Other)
  Sender: FDA-Public Use
  Company Number: GB-ELI_LILLY_AND_COMPANY-GB200701003034

PATIENT
  Age: 58 Year
  Sex: Female

DRUGS (4)
  1. DULOXETINE HYDROCHLORIDE [Suspect]
     Indication: DEPRESSION
     Route: 048
     Dates: start: 20060505, end: 20061208
  2. LANSOPRAZOLE [Concomitant]
     Indication: GASTROINTESTINAL DISORDER
     Dosage: 30 MG, UNK
     Route: 048
     Dates: start: 20060522, end: 20060915
  3. OLANZAPINE [Concomitant]
     Indication: PSYCHOTIC DISORDER
     Dosage: 20 MG, UNK
     Route: 048
     Dates: start: 20060517, end: 20060915
  4. PRIADEL [Concomitant]
     Indication: DEPRESSION
     Dosage: 400 MG, UNK
     Route: 048
     Dates: start: 20060525

REACTIONS (3)
  - DYSPHAGIA [None]
  - ORAL PAIN [None]
  - TONGUE ULCERATION [None]
